FAERS Safety Report 13891432 (Version 10)
Quarter: 2018Q1

REPORT INFORMATION
  Report Type: Report from Study
  Country: US (occurrence: US)
  Receive Date: 20170822
  Receipt Date: 20180118
  Transmission Date: 20180508
  Serious: Yes (Hospitalization, Other)
  Sender: FDA-Public Use
  Company Number: US-PFIZER INC-2017341096

PATIENT
  Age: 65 Year
  Sex: Female

DRUGS (3)
  1. IBRANCE [Suspect]
     Active Substance: PALBOCICLIB
     Dosage: 125 MG, DAILY
     Route: 048
     Dates: start: 20170812, end: 20171026
  2. IBRANCE [Suspect]
     Active Substance: PALBOCICLIB
     Indication: BREAST CANCER
     Dosage: 125 MG, DAILY
     Route: 048
     Dates: start: 20170727, end: 20170801
  3. IBRANCE [Suspect]
     Active Substance: PALBOCICLIB
     Dosage: 100 MG, DAILY
     Route: 048
     Dates: start: 20171031

REACTIONS (17)
  - Alopecia [Unknown]
  - Night sweats [Unknown]
  - Lymphoedema [Unknown]
  - Thirst [Not Recovered/Not Resolved]
  - Constipation [Unknown]
  - Neutropenia [Not Recovered/Not Resolved]
  - Epistaxis [Unknown]
  - Oedema peripheral [Unknown]
  - Drug dose omission [Unknown]
  - Leukopenia [Unknown]
  - Neuropathy peripheral [Not Recovered/Not Resolved]
  - Nausea [Unknown]
  - Fatigue [Not Recovered/Not Resolved]
  - Lip dry [Unknown]
  - Anaemia [Unknown]
  - Oral candidiasis [Unknown]
  - Dry mouth [Not Recovered/Not Resolved]

NARRATIVE: CASE EVENT DATE: 2017
